FAERS Safety Report 7096464-8 (Version None)
Quarter: 2010Q4

REPORT INFORMATION
  Report Type: 
  Country: None (occurrence: None)
  Receive Date: 20101111
  Receipt Date: 20101102
  Transmission Date: 20110411
  Serious: Yes (Death)
  Sender: FDA-Public Use
  Company Number: GXKR2010US12352

PATIENT
  Age: 71 Year
  Sex: Female

DRUGS (6)
  1. ATORVASTATIN (NGX) [Interacting]
     Dosage: 10 MG/DAY
     Route: 065
  2. ATORVASTATIN (NGX) [Interacting]
     Dosage: 20 MG/DAY
     Route: 065
  3. VERAPAMIL [Suspect]
     Indication: HYPERTENSION
     Dosage: 80 MG, TID
     Route: 065
  4. LISINOPRIL [Concomitant]
     Route: 065
  5. INSULIN [Concomitant]
     Route: 065
  6. FAMOTIDINE [Concomitant]
     Route: 065

REACTIONS (17)
  - ACUTE HEPATIC FAILURE [None]
  - ASTHENIA [None]
  - CHROMATURIA [None]
  - CONFUSIONAL STATE [None]
  - DISSEMINATED INTRAVASCULAR COAGULATION [None]
  - DRUG INTERACTION [None]
  - ENDOTRACHEAL INTUBATION [None]
  - HAEMODIALYSIS [None]
  - HEPATOMEGALY [None]
  - JAUNDICE [None]
  - MECHANICAL VENTILATION [None]
  - METABOLIC ACIDOSIS [None]
  - MULTI-ORGAN FAILURE [None]
  - MYALGIA [None]
  - NAUSEA [None]
  - RENAL FAILURE ACUTE [None]
  - VOMITING [None]
